FAERS Safety Report 21271704 (Version 1)
Quarter: 2022Q3

REPORT INFORMATION
  Report Type: Report from Study
  Country: US (occurrence: US)
  Receive Date: 20220830
  Receipt Date: 20220830
  Transmission Date: 20221027
  Serious: Yes (Other)
  Sender: FDA-Public Use
  Company Number: US-BRISTOL-MYERS SQUIBB COMPANY-2022-094101

PATIENT
  Age: 56 Year
  Sex: Female
  Weight: 70.8 kg

DRUGS (1)
  1. REVLIMID [Suspect]
     Active Substance: LENALIDOMIDE
     Indication: Plasma cell myeloma
     Dosage: 1-21 DAYS OUT OF 28 DAYS CYCLE
     Route: 048
     Dates: start: 201710

REACTIONS (2)
  - Nasopharyngitis [Unknown]
  - Upper-airway cough syndrome [Unknown]
